FAERS Safety Report 6634404-3 (Version None)
Quarter: 2010Q1

REPORT INFORMATION
  Report Type: 
  Country: None (occurrence: None)
  Receive Date: 20100311
  Receipt Date: 20100311
  Transmission Date: 20100710
  Serious: No
  Sender: FDA-Public Use
  Company Number: None

PATIENT
  Sex: Female

DRUGS (1)
  1. LATISSE [Suspect]

REACTIONS (4)
  - EYE SWELLING [None]
  - MADAROSIS [None]
  - OCULAR HYPERAEMIA [None]
  - SKIN EXFOLIATION [None]
